FAERS Safety Report 24341338 (Version 1)
Quarter: 2024Q3

REPORT INFORMATION
  Report Type: Spontaneous
  Country: US (occurrence: US)
  Receive Date: 20240920
  Receipt Date: 20240920
  Transmission Date: 20241017
  Serious: Yes (Hospitalization, Other)
  Sender: SANOFI AVENTIS
  Company Number: US-SA-2024SA269921

PATIENT
  Age: 55 Year
  Sex: Female
  Weight: 136.36 kg

DRUGS (16)
  1. DUPILUMAB [Suspect]
     Active Substance: DUPILUMAB
     Indication: Rheumatoid arthritis
     Dosage: 600 MG, 1X
     Route: 058
  2. DUPILUMAB [Suspect]
     Active Substance: DUPILUMAB
     Dosage: 300 MG, QOW
     Route: 058
  3. ROPINIROLE HYDROCHLORIDE [Concomitant]
     Active Substance: ROPINIROLE HYDROCHLORIDE
  4. PYRIDIUM [Concomitant]
     Active Substance: PHENAZOPYRIDINE
  5. HYDROXYZINE HYDROCHLORIDE [Concomitant]
     Active Substance: HYDROXYZINE HYDROCHLORIDE
  6. KETOROLAC TROMETHAMINE [Concomitant]
     Active Substance: KETOROLAC TROMETHAMINE
  7. VITAMIN D3 [Concomitant]
     Active Substance: CHOLECALCIFEROL
  8. MONTELUKAST SODIUM [Concomitant]
     Active Substance: MONTELUKAST\MONTELUKAST SODIUM
  9. MECLIZINE HYDROCHLORIDE [Concomitant]
     Active Substance: MECLIZINE HYDROCHLORIDE
  10. SYNTHROID [Concomitant]
     Active Substance: LEVOTHYROXINE SODIUM
  11. ZINC [Concomitant]
     Active Substance: ZINC
  12. VITAMIN C [Concomitant]
     Active Substance: ASCORBIC ACID
  13. ALLOPURINOL [Concomitant]
     Active Substance: ALLOPURINOL
  14. PREDNISONE [Concomitant]
     Active Substance: PREDNISONE
  15. IPRATROPIUM [Concomitant]
     Active Substance: IPRATROPIUM
  16. GUAIFENESIN AND DEXTROMETHORPHAN [Concomitant]
     Active Substance: DEXTROMETHORPHAN\GUAIFENESIN

REACTIONS (4)
  - Pneumonia [Unknown]
  - Rash macular [Unknown]
  - Rash pruritic [Unknown]
  - Product use in unapproved indication [Unknown]
